FAERS Safety Report 11812865 (Version 3)
Quarter: 2016Q2

REPORT INFORMATION
  Report Type: Spontaneous
  Country: JP (occurrence: JP)
  Receive Date: 20151209
  Receipt Date: 20160421
  Transmission Date: 20160815
  Serious: Yes (Hospitalization, Disabling, Other)
  Sender: FDA-Public Use
  Company Number: JP-ROCHE-1673017

PATIENT
  Age: 60 Year
  Sex: Male
  Weight: 55.07 kg

DRUGS (8)
  1. ONON [Suspect]
     Active Substance: PRANLUKAST
     Indication: ASTHMA
     Route: 048
     Dates: start: 20150728, end: 20150811
  2. MONTELUKAST [Suspect]
     Active Substance: MONTELUKAST SODIUM
     Indication: ASTHMA
     Route: 048
     Dates: start: 20151125, end: 20151224
  3. XYZAL [Concomitant]
     Active Substance: LEVOCETIRIZINE DIHYDROCHLORIDE
     Route: 065
     Dates: start: 20151006, end: 20160105
  4. XYZAL [Concomitant]
     Active Substance: LEVOCETIRIZINE DIHYDROCHLORIDE
     Route: 065
     Dates: start: 20150317, end: 20150519
  5. XYZAL [Concomitant]
     Active Substance: LEVOCETIRIZINE DIHYDROCHLORIDE
     Route: 065
     Dates: start: 20150721, end: 20150908
  6. IPD [Concomitant]
     Active Substance: SUPLATAST TOSILATE
     Route: 065
     Dates: start: 20150728, end: 20160103
  7. SINGULAIR [Suspect]
     Active Substance: MONTELUKAST SODIUM
     Indication: ASTHMA
     Route: 048
     Dates: start: 20150301, end: 20151125
  8. XOLAIR [Suspect]
     Active Substance: OMALIZUMAB
     Indication: ASTHMA
     Route: 058
     Dates: start: 20151110, end: 20151110

REACTIONS (11)
  - Eosinophil percentage decreased [Not Recovered/Not Resolved]
  - Allergic granulomatous angiitis [Recovered/Resolved with Sequelae]
  - Lymphocyte percentage decreased [Not Recovered/Not Resolved]
  - Neutrophil percentage increased [Not Recovered/Not Resolved]
  - White blood cell count increased [Unknown]
  - Neutrophil percentage decreased [Unknown]
  - Basophil percentage increased [Unknown]
  - Monocyte percentage decreased [Unknown]
  - Monocyte percentage increased [Unknown]
  - Platelet count increased [Not Recovered/Not Resolved]
  - Basophil percentage decreased [Not Recovered/Not Resolved]

NARRATIVE: CASE EVENT DATE: 201511
